APPROVED DRUG PRODUCT: PROCHLORPERAZINE MALEATE
Active Ingredient: PROCHLORPERAZINE MALEATE
Strength: EQ 10MG BASE
Dosage Form/Route: TABLET;ORAL
Application: A218515 | Product #002 | TE Code: AB
Applicant: AJANTA PHARMA LTD
Approved: May 9, 2024 | RLD: No | RS: No | Type: RX